FAERS Safety Report 5858289-8 (Version None)
Quarter: 2008Q3

REPORT INFORMATION
  Report Type: 
  Country: None (occurrence: None)
  Receive Date: 20080826
  Receipt Date: 20080819
  Transmission Date: 20090109
  Serious: Yes (Death, Life-Threatening, Hospitalization)
  Sender: FDA-Public Use
  Company Number: A0744496A

PATIENT
  Age: 89 Year
  Sex: Male
  Weight: 50 kg

DRUGS (3)
  1. SERETIDE [Suspect]
     Route: 055
     Dates: start: 20020816, end: 20080601
  2. HYDROCHLOROTHIAZIDE [Concomitant]
     Dosage: 50MG PER DAY
     Dates: start: 19980814, end: 20080801
  3. CAPTOPRIL [Concomitant]
     Dates: start: 19980814, end: 20080801

REACTIONS (1)
  - DYSPNOEA [None]
